FAERS Safety Report 6657757-9 (Version None)
Quarter: 2010Q1

REPORT INFORMATION
  Report Type: 
  Country: None (occurrence: None)
  Receive Date: 20100325
  Receipt Date: 20100305
  Transmission Date: 20100710
  Serious: Yes (Other)
  Sender: FDA-Public Use
  Company Number: 2010AL001638

PATIENT
  Age: 66 Year
  Sex: Female

DRUGS (2)
  1. FEVERALL [Suspect]
     Dosage: 1 G; RECTAL
     Route: 054
  2. XARELTO [Concomitant]

REACTIONS (6)
  - CONDITION AGGRAVATED [None]
  - DIZZINESS [None]
  - DYSPEPSIA [None]
  - HEADACHE [None]
  - NAUSEA [None]
  - SYNCOPE [None]
